FAERS Safety Report 16438981 (Version 2)
Quarter: 2022Q3

REPORT INFORMATION
  Report Type: Other
  Country: BW (occurrence: BW)
  Receive Date: 20190617
  Receipt Date: 20220829
  Transmission Date: 20221027
  Serious: Yes (Other)
  Sender: FDA-Public Use
  Company Number: US-MACLEODS PHARMACEUTICALS US LTD-MAC2019021636

PATIENT

DRUGS (4)
  1. LAMIVUDINE [Suspect]
     Active Substance: LAMIVUDINE
     Indication: HIV infection
     Dosage: UNK, 1 COURSE DURING THIRD TRIMESTER
     Route: 048
     Dates: start: 20181008
  2. TENOFOVIR [Suspect]
     Active Substance: TENOFOVIR
     Indication: HIV infection
     Dosage: UNK, 1 COURSE,PRIOR TO CONCEPTION EXPOSED DURING FIRST TRIMESTER.
     Route: 048
     Dates: start: 20170322
  3. EMTRIVA [Suspect]
     Active Substance: EMTRICITABINE
     Indication: HIV infection
     Dosage: UNK, 1 COURSE, PRIOR TO CONCEPTION EXPOSED DURING FIRST TRIMESTER.
     Route: 048
     Dates: start: 20170322
  4. TIVICAY [Suspect]
     Active Substance: DOLUTEGRAVIR SODIUM
     Indication: HIV infection
     Dosage: UNK, 1 COURSE, PRIOR TO CONCEPTION EXPOSED DURING FIRST TRIMESTER.
     Route: 048
     Dates: start: 20170322

REACTIONS (2)
  - Stillbirth [Unknown]
  - Maternal exposure during pregnancy [Unknown]

NARRATIVE: CASE EVENT DATE: 20181101
